FAERS Safety Report 11389304 (Version 1)
Quarter: 2015Q3

REPORT INFORMATION
  Report Type: Spontaneous
  Country: US (occurrence: US)
  Receive Date: 20150817
  Receipt Date: 20150817
  Transmission Date: 20151125
  Serious: Yes (Other)
  Sender: FDA-Public Use
  Company Number: US-ALLERGAN-1515904US

PATIENT
  Age: 67 Year
  Sex: Female

DRUGS (7)
  1. BOTOX [Concomitant]
     Active Substance: ONABOTULINUMTOXINA
     Indication: BLEPHAROSPASM
     Dosage: UNK UNK, SINGLE
     Dates: start: 2001, end: 2001
  2. GINKGO BILOBA [Concomitant]
     Active Substance: GINKGO
     Indication: SUPPLEMENTATION THERAPY
     Route: 048
  3. BOTOX [Concomitant]
     Active Substance: ONABOTULINUMTOXINA
     Dosage: UNK, SINGLE
     Dates: start: 201310, end: 201310
  4. ASA [Concomitant]
     Active Substance: ASPIRIN
     Indication: PAIN
  5. AMLODIPINE [Concomitant]
     Active Substance: AMLODIPINE BESYLATE
     Indication: HYPERTENSION
     Dosage: 5 MG, UNK
     Route: 048
     Dates: start: 2010
  6. RESTASIS [Suspect]
     Active Substance: CYCLOSPORINE
     Indication: DRY EYE
     Dosage: UNK UNK, BID
     Route: 047
     Dates: start: 2002
  7. BIOTENE (PASTE) [Concomitant]
     Active Substance: SODIUM MONOFLUOROPHOSPHATE
     Indication: DRY MOUTH
     Dosage: UNK UNK, PRN
     Dates: start: 2003

REACTIONS (8)
  - Nasal operation [Unknown]
  - Pain in extremity [Not Recovered/Not Resolved]
  - Arthralgia [Not Recovered/Not Resolved]
  - Expired product administered [Unknown]
  - Back pain [Not Recovered/Not Resolved]
  - Dysarthria [Not Recovered/Not Resolved]
  - Dry mouth [Not Recovered/Not Resolved]
  - Dyspnoea [Not Recovered/Not Resolved]

NARRATIVE: CASE EVENT DATE: 2002
